FAERS Safety Report 5848821-2 (Version None)
Quarter: 2008Q3

REPORT INFORMATION
  Report Type: 
  Country: None (occurrence: None)
  Receive Date: 20080818
  Receipt Date: 20080806
  Transmission Date: 20090109
  Serious: Yes (Other)
  Sender: FDA-Public Use
  Company Number: US-PFIZER INC-2008066853

PATIENT
  Sex: Female
  Weight: 61.2 kg

DRUGS (2)
  1. ZOLOFT [Suspect]
     Indication: DEPRESSION
     Dates: start: 20070101, end: 20080701
  2. NORVASC [Concomitant]

REACTIONS (8)
  - ABNORMAL BEHAVIOUR [None]
  - BENIGN UTERINE NEOPLASM [None]
  - BLINDNESS TRANSIENT [None]
  - DIZZINESS [None]
  - ENERGY INCREASED [None]
  - EYELID PTOSIS [None]
  - FATIGUE [None]
  - INSOMNIA [None]
